FAERS Safety Report 6767531-0 (Version None)
Quarter: 2010Q2

REPORT INFORMATION
  Report Type: 
  Country: None (occurrence: None)
  Receive Date: 20100614
  Receipt Date: 20100608
  Transmission Date: 20101027
  Serious: Yes (Other)
  Sender: FDA-Public Use
  Company Number: FR-BRISTOL-MYERS SQUIBB COMPANY-15065600

PATIENT
  Age: 56 Year
  Sex: Female
  Weight: 64 kg

DRUGS (5)
  1. ORENCIA [Suspect]
     Indication: RHEUMATOID ARTHRITIS
     Dates: start: 20051201, end: 20080101
  2. METHOTREXATE [Concomitant]
  3. BI-PROFENID [Concomitant]
  4. NEXIUM [Concomitant]
  5. ACEBUTOLOL [Concomitant]

REACTIONS (2)
  - DRUG INEFFECTIVE [None]
  - EOSINOPHILIA [None]
